FAERS Safety Report 26160725 (Version 1)
Quarter: 2025Q4

REPORT INFORMATION
  Report Type: Spontaneous
  Country: AU (occurrence: AU)
  Receive Date: 20251216
  Receipt Date: 20251216
  Transmission Date: 20260118
  Serious: Yes (Other)
  Sender: ACCORD
  Company Number: None

PATIENT
  Age: 34 Year
  Sex: Female

DRUGS (5)
  1. CARBOPLATIN [Suspect]
     Active Substance: CARBOPLATIN
     Indication: Product used for unknown indication
  2. DOXORUBICIN HYDROCHLORIDE [Suspect]
     Active Substance: DOXORUBICIN HYDROCHLORIDE
     Indication: Product used for unknown indication
  3. CYCLOPHOSPHAMIDE [Suspect]
     Active Substance: CYCLOPHOSPHAMIDE
     Indication: Product used for unknown indication
  4. PEMBROLIZUMAB [Suspect]
     Active Substance: PEMBROLIZUMAB
     Indication: Product used for unknown indication
  5. TAXOL [Suspect]
     Active Substance: PACLITAXEL
     Indication: Product used for unknown indication

REACTIONS (5)
  - Arthritis [Unknown]
  - Hypothyroidism [Unknown]
  - Neuropathy peripheral [Unknown]
  - Hot flush [Unknown]
  - Weight increased [Unknown]
